FAERS Safety Report 11703506 (Version 2)
Quarter: 2015Q4

REPORT INFORMATION
  Report Type: Spontaneous
  Country: US (occurrence: US)
  Receive Date: 20151105
  Receipt Date: 20151221
  Transmission Date: 20160304
  Serious: Yes (Death, Other)
  Sender: FDA-Public Use
  Company Number: US-BRISTOL-MYERS SQUIBB COMPANY-BMS-2015-073903

PATIENT
  Sex: Male

DRUGS (1)
  1. SPRYCEL [Suspect]
     Active Substance: DASATINIB
     Indication: GLIOBLASTOMA
     Dosage: 50 MG, BID
     Route: 048
     Dates: start: 20151002

REACTIONS (2)
  - Off label use [Unknown]
  - Malignant neoplasm progression [Fatal]
